FAERS Safety Report 17523236 (Version 2)
Quarter: 2020Q2

REPORT INFORMATION
  Report Type: Report from Study
  Country: None (occurrence: BR)
  Receive Date: 20200311
  Receipt Date: 20200402
  Transmission Date: 20200713
  Serious: Yes (Other)
  Sender: FDA-Public Use
  Company Number: BR-ABBVIE-19K-020-2939517-00

PATIENT
  Sex: Male
  Weight: 50 kg

DRUGS (4)
  1. NIMESULIDE [Concomitant]
     Active Substance: NIMESULIDE
     Indication: COCCYDYNIA
  2. METRONIDAZOL [Concomitant]
     Active Substance: METRONIDAZOLE
     Indication: CROHN^S DISEASE
     Dates: start: 20191001
  3. CIPROFLOXACIN. [Concomitant]
     Active Substance: CIPROFLOXACIN
     Indication: CROHN^S DISEASE
     Route: 048
     Dates: start: 20191001
  4. HUMIRA [Suspect]
     Active Substance: ADALIMUMAB
     Indication: CROHN^S DISEASE
     Route: 058
     Dates: start: 201904, end: 201910

REACTIONS (6)
  - Tuberculosis [Recovering/Resolving]
  - Pain [Recovering/Resolving]
  - Crohn^s disease [Unknown]
  - Haemorrhage [Recovering/Resolving]
  - Colitis [Unknown]
  - Lymphadenopathy [Unknown]

NARRATIVE: CASE EVENT DATE: 2019
